FAERS Safety Report 4955339-8 (Version None)
Quarter: 2006Q1

REPORT INFORMATION
  Report Type: 
  Country: None (occurrence: None)
  Receive Date: 20060328
  Receipt Date: 20060315
  Transmission Date: 20060701
  Serious: Yes (Other)
  Sender: FDA-Public Use
  Company Number: PHBS2006JP04178

PATIENT

DRUGS (2)
  1. TOFRANIL [Suspect]
     Route: 048
  2. LEXOTAN [Suspect]
     Route: 048

REACTIONS (3)
  - DRUG INTERACTION [None]
  - ERYTHEMA [None]
  - SUICIDE ATTEMPT [None]
